FAERS Safety Report 23286982 (Version 1)
Quarter: 2023Q4

REPORT INFORMATION
  Report Type: Spontaneous
  Country: US (occurrence: None)
  Receive Date: 20231209
  Receipt Date: 20231209
  Transmission Date: 20240110
  Serious: Yes (Other)
  Sender: FDA-Public Use
  Company Number: None

PATIENT
  Age: 33 Year
  Sex: Female
  Weight: 53.1 kg

DRUGS (8)
  1. MUCINEX DM [Suspect]
     Active Substance: DEXTROMETHORPHAN HYDROBROMIDE\GUAIFENESIN
     Route: 048
     Dates: start: 20231206, end: 20231206
  2. PROGESTERONE [Concomitant]
     Active Substance: PROGESTERONE
  3. ESTROGENS [Concomitant]
     Active Substance: ESTROGENS
  4. Propronalol [Concomitant]
  5. VITAMIN C [Concomitant]
     Active Substance: ASCORBIC ACID
  6. VITAMIN D [Concomitant]
     Active Substance: VITAMIN D NOS
  7. VITAMIN B [Concomitant]
     Active Substance: VITAMIN B
  8. PROBIOTICS NOS [Concomitant]
     Active Substance: PROBIOTICS NOS

REACTIONS (6)
  - Product use issue [None]
  - Palpitations [None]
  - Dizziness [None]
  - Nausea [None]
  - Mental impairment [None]
  - Fear [None]

NARRATIVE: CASE EVENT DATE: 20231206
